FAERS Safety Report 8770871 (Version 3)
Quarter: 2013Q1

REPORT INFORMATION
  Report Type: Spontaneous
  Country: US (occurrence: US)
  Receive Date: 20120906
  Receipt Date: 20130306
  Transmission Date: 20140127
  Serious: Yes (Hospitalization, Disabling, Other)
  Sender: FDA-Public Use
  Company Number: US-009507513-1208USA012639

PATIENT
  Sex: Female
  Weight: 79.37 kg

DRUGS (1)
  1. NUVARING [Suspect]
     Indication: CONTRACEPTION
     Dosage: UNK
     Route: 067
     Dates: start: 200905, end: 200909

REACTIONS (14)
  - Pulmonary embolism [Unknown]
  - Deep vein thrombosis [Unknown]
  - Maternal exposure before pregnancy [Unknown]
  - Asthma [Unknown]
  - Pyuria [Recovered/Resolved]
  - Obesity [Unknown]
  - Seasonal allergy [Unknown]
  - Rhinitis perennial [Unknown]
  - Depression [Unknown]
  - Haematochezia [Unknown]
  - Upper respiratory tract infection [Unknown]
  - Fibrocystic breast disease [Unknown]
  - Suicidal ideation [Unknown]
  - Headache [Unknown]
